FAERS Safety Report 19577848 (Version 2)
Quarter: 2021Q3

REPORT INFORMATION
  Report Type: Spontaneous
  Country: JP (occurrence: JP)
  Receive Date: 20210719
  Receipt Date: 20210805
  Transmission Date: 20211014
  Serious: Yes (Disabling, Other)
  Sender: FDA-Public Use
  Company Number: JP-ALLERGAN-2124506US

PATIENT
  Sex: Female

DRUGS (6)
  1. KARY UNI [Concomitant]
     Active Substance: PIRENOXINE
     Indication: CATARACT
     Dosage: 1 GTT, QD
     Route: 047
     Dates: start: 20150724, end: 20210611
  2. CARBAZOCHROME SODIUM SULFONATE [Concomitant]
     Active Substance: CARBAZOCHROME SODIUM SULFONATE
     Indication: RETINAL VEIN OCCLUSION
     Dosage: 9 DF, QD
     Route: 048
     Dates: start: 20150724, end: 20161107
  3. TOCOPHEROL NICOTINATE [Concomitant]
     Active Substance: TOCOPHERYL NICOTINATE, D-.ALPHA.
     Indication: RETINAL VEIN OCCLUSION
     Dosage: 9 DF, QD
     Route: 048
     Dates: start: 20150724, end: 20160601
  4. DIQUAS [Concomitant]
     Active Substance: DIQUAFOSOL TETRASODIUM
     Indication: DRY EYE
     Dosage: 4 GTT, QD
     Route: 047
     Dates: start: 20190423, end: 20210611
  5. ALPHAGAN P [Suspect]
     Active Substance: BRIMONIDINE TARTRATE
     Indication: GLAUCOMA
     Dosage: 2 DROP (DAILY DOSE)
     Route: 047
     Dates: start: 20151120, end: 202006
  6. ALESION [Concomitant]
     Active Substance: EPINASTINE HYDROCHLORIDE
     Indication: CONJUNCTIVITIS ALLERGIC
     Dosage: 4 GTT, QD
     Route: 047
     Dates: start: 20151221, end: 20210619

REACTIONS (1)
  - Corneal opacity [Recovered/Resolved with Sequelae]

NARRATIVE: CASE EVENT DATE: 20200619
